FAERS Safety Report 8171477-3 (Version None)
Quarter: 2012Q1

REPORT INFORMATION
  Report Type: 
  Country: None (occurrence: None)
  Receive Date: 20120228
  Receipt Date: 20120222
  Transmission Date: 20120608
  Serious: Yes (Hospitalization)
  Sender: FDA-Public Use
  Company Number: US-B.I. PHARMACEUTICALS,INC./RIDGEFIELD-2011-BP-23102BP

PATIENT
  Age: 83 Year
  Sex: Male
  Weight: 92.7 kg

DRUGS (18)
  1. LANTUS [Concomitant]
     Dosage: 30 U
  2. IRON [Concomitant]
     Dosage: 325 MG
  3. JANUVIA [Concomitant]
     Dosage: 100 MG
  4. LOVASTATIN [Concomitant]
     Dosage: 40 MG
  5. VITAMIN D [Concomitant]
  6. ZETIA [Concomitant]
     Dosage: 10 MG
  7. ALLOPURINOL [Concomitant]
     Dosage: 300 MG
  8. PREVACID [Concomitant]
     Dosage: 30 MG
  9. ASPIRIN [Concomitant]
     Dosage: 81 MG
  10. LISINOPRIL [Concomitant]
     Dosage: 5 MG
  11. GLYBURIDE [Concomitant]
     Dosage: 5 MG
  12. FUROSEMIDE [Concomitant]
     Dosage: 40 MG
  13. FISH OIL [Concomitant]
     Dosage: 2000 MG
  14. PRADAXA [Suspect]
     Indication: EMBOLIC STROKE
     Dosage: 300 MG
     Route: 048
  15. ANTIOXIDANT VITAMINS [Concomitant]
  16. DIGOXIN [Concomitant]
     Dosage: 0.125 MG
  17. CALCIUM [Concomitant]
  18. POTASSIUM CHLORIDE [Concomitant]
     Dosage: 10 MEQ

REACTIONS (4)
  - ARTERIOVENOUS MALFORMATION [None]
  - OEDEMA PERIPHERAL [None]
  - GASTROINTESTINAL HAEMORRHAGE [None]
  - DIZZINESS [None]
